FAERS Safety Report 9753609 (Version 1)
Quarter: 2013Q4

REPORT INFORMATION
  Report Type: Spontaneous
  Country: GB (occurrence: None)
  Receive Date: 20131211
  Receipt Date: 20131211
  Transmission Date: 20140711
  Serious: Yes (Other)
  Sender: FDA-Public Use
  Company Number: B0951372A

PATIENT
  Sex: Female

DRUGS (2)
  1. PAROXETINE HYDROCHLORIDE [Suspect]
     Indication: DEPRESSION
  2. CITALOPRAM [Suspect]
     Indication: DEPRESSION

REACTIONS (15)
  - Alcoholism [None]
  - Abnormal behaviour [None]
  - Legal problem [None]
  - Coma [None]
  - Alcohol poisoning [None]
  - Psychomotor hyperactivity [None]
  - Dissociation [None]
  - Logorrhoea [None]
  - Memory impairment [None]
  - Disturbance in attention [None]
  - Loss of employment [None]
  - Phobia [None]
  - Disinhibition [None]
  - Antisocial behaviour [None]
  - Disease recurrence [None]
